FAERS Safety Report 9901698 (Version 1)
Quarter: 2014Q1

REPORT INFORMATION
  Report Type: Spontaneous
  Country: US (occurrence: US)
  Receive Date: 20140217
  Receipt Date: 20140217
  Transmission Date: 20141002
  Serious: Yes (Death, Other)
  Sender: FDA-Public Use
  Company Number: PHHY2014US015912

PATIENT
  Age: 57 Year
  Sex: Female

DRUGS (7)
  1. PREDNISONE [Suspect]
  2. 5-FLUOROURACIL [Suspect]
     Dosage: 500 MG/M2, UNK
  3. METHOTREXATE [Suspect]
     Dosage: 30 MG/M2, UNK
  4. LEUCOVORIN CALCIUM [Suspect]
     Dosage: 30 MG, Q6H
  5. CYCLOPHOSPHAMIDE [Suspect]
     Dosage: 500 MG/M2, UNK
     Route: 042
  6. ADRIAMYCIN [Suspect]
  7. ALLOPURINOL [Concomitant]
     Dosage: 300 MG, DAILY

REACTIONS (27)
  - Pneumonia [Fatal]
  - Dyspnoea [Fatal]
  - Lung infiltration [Fatal]
  - Blood creatinine increased [Unknown]
  - Blood uric acid increased [Recovering/Resolving]
  - Tumour lysis syndrome [Unknown]
  - Blood lactate dehydrogenase increased [Unknown]
  - Hyperphosphataemia [Recovering/Resolving]
  - Hyperkalaemia [Recovering/Resolving]
  - Hypocalcaemia [Recovering/Resolving]
  - Hypotension [Unknown]
  - Thrombocytopenia [Unknown]
  - Lung neoplasm malignant [Unknown]
  - Bronchopneumonia [Unknown]
  - Staphylococcus test positive [Unknown]
  - Hepatic necrosis [Unknown]
  - Metastases to liver [Unknown]
  - Kidney enlargement [Unknown]
  - Renal tubular necrosis [Unknown]
  - Bone marrow necrosis [Unknown]
  - Granulocytopenia [Unknown]
  - Urate nephropathy [Unknown]
  - Nephropathy toxic [Unknown]
  - Chest wall tumour [Unknown]
  - Lung disorder [Unknown]
  - Malignant pleural effusion [Unknown]
  - Drug level increased [Unknown]
